FAERS Safety Report 5150114-6 (Version None)
Quarter: 2006Q4

REPORT INFORMATION
  Report Type: 
  Country: None (occurrence: None)
  Receive Date: 20061114
  Receipt Date: 20061107
  Transmission Date: 20070319
  Serious: Yes (Death, Hospitalization, Other)
  Sender: FDA-Public Use
  Company Number: BR-JNJFOC-20061006114

PATIENT
  Sex: Male

DRUGS (3)
  1. REMICADE [Suspect]
     Dosage: TOTAL DURATION OF THERAPY 8 MONTHS
     Route: 042
  2. REMICADE [Suspect]
     Indication: RHEUMATOID ARTHRITIS
     Dosage: THREE INFUSIONS ON UNKNOWN DATES
     Route: 042
  3. METHOTREXATE [Concomitant]
     Route: 048

REACTIONS (5)
  - LIVER DISORDER [None]
  - LUNG INFECTION [None]
  - PANCYTOPENIA [None]
  - PNEUMOCYSTIS JIROVECI PNEUMONIA [None]
  - TUBERCULOSIS [None]
